FAERS Safety Report 14745596 (Version 1)
Quarter: 2018Q2

REPORT INFORMATION
  Report Type: Spontaneous
  Country: ES (occurrence: ES)
  Receive Date: 20180411
  Receipt Date: 20180411
  Transmission Date: 20180711
  Serious: Yes (Other)
  Sender: FDA-Public Use
  Company Number: ES-AUROBINDO-AUR-APL-2018-019310

PATIENT
  Age: 72 Year
  Sex: Female

DRUGS (4)
  1. FELODIPINE. [Concomitant]
     Active Substance: FELODIPINE
     Indication: DYSLIPIDAEMIA
     Dosage: ()
  2. PRAVASTATIN. [Suspect]
     Active Substance: PRAVASTATIN
     Indication: DYSLIPIDAEMIA
     Dosage: ()
     Route: 065
  3. FELODIPINE. [Concomitant]
     Active Substance: FELODIPINE
     Indication: HYPERTENSION
     Dosage: ()
  4. PRAVASTATIN. [Suspect]
     Active Substance: PRAVASTATIN
     Indication: HYPERTENSION
     Dosage: ()
     Route: 065

REACTIONS (4)
  - Acne [Unknown]
  - Pruritus [Unknown]
  - Erythema [Unknown]
  - Lichen planus [Unknown]
